FAERS Safety Report 5093158-5 (Version None)
Quarter: 2006Q3

REPORT INFORMATION
  Report Type: 
  Country: None (occurrence: None)
  Receive Date: 20060830
  Receipt Date: 20060818
  Transmission Date: 20061208
  Serious: Yes (Death)
  Sender: FDA-Public Use
  Company Number: US-ROCHE-460248

PATIENT
  Age: 18 Year
  Sex: Male

DRUGS (3)
  1. MYCOPHENOLATE MOFETIL [Suspect]
     Indication: IMMUNOSUPPRESSION
     Route: 065
  2. MYCOPHENOLATE MOFETIL [Suspect]
     Route: 065
  3. PREDNISONE TAB [Suspect]
     Indication: IMMUNOSUPPRESSION
     Route: 065

REACTIONS (12)
  - BRAIN HERNIATION [None]
  - CENTRAL NERVOUS SYSTEM LESION [None]
  - DIZZINESS [None]
  - DYSSTASIA [None]
  - HYDROCEPHALUS [None]
  - LEUKOPENIA [None]
  - LYMPHOPROLIFERATIVE DISORDER [None]
  - MENTAL STATUS CHANGES [None]
  - ORTHOSTATIC HYPOTENSION [None]
  - PYREXIA [None]
  - RED BLOOD CELL COUNT INCREASED [None]
  - UNRESPONSIVE TO STIMULI [None]
